FAERS Safety Report 7515738-7 (Version None)
Quarter: 2011Q2

REPORT INFORMATION
  Report Type: 
  Country: None (occurrence: None)
  Receive Date: 20110601
  Receipt Date: 20100723
  Transmission Date: 20111010
  Serious: Yes (Death, Other)
  Sender: FDA-Public Use
  Company Number: US-PFIZER INC-2010035449

PATIENT
  Sex: Female

DRUGS (18)
  1. CHANTIX [Suspect]
     Indication: SMOKING CESSATION THERAPY
     Dosage: UNK
     Route: 048
     Dates: start: 20070416, end: 20080401
  2. PROZAC [Concomitant]
     Indication: DEPRESSION
     Dosage: UNK
     Dates: start: 19950101, end: 20080101
  3. LEVOXYL [Concomitant]
     Indication: HYPOTHYROIDISM
     Dosage: UNK
     Dates: start: 20040101, end: 20080101
  4. KLONOPIN [Concomitant]
     Indication: ANXIETY
     Dosage: UNK
     Dates: start: 19990101, end: 20080101
  5. ESTRADIOL [Concomitant]
     Indication: HORMONE REPLACEMENT THERAPY
     Dosage: UNK
     Dates: start: 20010101, end: 20080101
  6. LEXAPRO [Concomitant]
     Indication: DEPRESSION
     Dosage: UNK
     Dates: start: 19950101, end: 20080101
  7. LAMICTAL [Concomitant]
     Indication: DEPRESSION
     Dosage: UNK
     Dates: start: 19950101, end: 20080101
  8. REMERON [Concomitant]
     Indication: DEPRESSION
     Dosage: UNK
     Dates: start: 19950101, end: 20080101
  9. EFFEXOR [Concomitant]
     Indication: DEPRESSION
     Dosage: UNK
     Dates: start: 19950101, end: 20080101
  10. TRANXENE [Concomitant]
     Indication: ANXIETY
     Dosage: UNK
     Dates: start: 19990101, end: 20080101
  11. PAXIL [Concomitant]
     Indication: DEPRESSION
     Dosage: UNK
     Dates: start: 19950101, end: 20080101
  12. TRAZODONE [Concomitant]
     Indication: DEPRESSION
     Dosage: UNK
     Dates: start: 19950101, end: 20080101
  13. ZOLOFT [Concomitant]
     Indication: DEPRESSION
     Dosage: UNK
     Dates: start: 19950101, end: 20080101
  14. WELLBUTRIN [Concomitant]
     Indication: DEPRESSION
     Dosage: UNK
     Dates: start: 19950101, end: 20080101
  15. ELAVIL [Concomitant]
     Indication: DEPRESSION
     Dosage: UNK
     Dates: start: 19950101, end: 20080101
  16. PREMARIN [Concomitant]
     Indication: HORMONE REPLACEMENT THERAPY
     Dosage: UNK
     Dates: start: 20010101, end: 20080101
  17. XANAX [Concomitant]
     Indication: ANXIETY
     Dosage: UNK
     Dates: start: 19990101, end: 20080101
  18. PREDNISONE [Concomitant]
     Indication: HYPERSENSITIVITY
     Dosage: UNK
     Dates: start: 20060101, end: 20080101

REACTIONS (5)
  - DEPRESSION [None]
  - ANXIETY [None]
  - COMPLETED SUICIDE [None]
  - ABNORMAL BEHAVIOUR [None]
  - INSOMNIA [None]
